FAERS Safety Report 14964321 (Version 1)
Quarter: 2018Q2

REPORT INFORMATION
  Report Type: Spontaneous
  Country: JP (occurrence: JP)
  Receive Date: 20180601
  Receipt Date: 20180601
  Transmission Date: 20180711
  Serious: Yes (Death, Other)
  Sender: FDA-Public Use
  Company Number: JP-OTSUKA-2018_014182

PATIENT
  Age: 79 Year
  Sex: Female

DRUGS (3)
  1. CLOPIDOGREL [Suspect]
     Active Substance: CLOPIDOGREL BISULFATE
     Indication: CEREBROVASCULAR DISORDER
     Dosage: UNK
     Route: 065
  2. ARGATROBAN. [Concomitant]
     Active Substance: ARGATROBAN
     Indication: ARTERIAL THROMBOSIS
     Dosage: 60 MG, DAILY DOSE
     Route: 065
  3. CILOSTAZOL. [Suspect]
     Active Substance: CILOSTAZOL
     Indication: CEREBROVASCULAR DISORDER
     Dosage: 200 MG, DAILY DOSE
     Route: 065

REACTIONS (3)
  - Melaena [Fatal]
  - Haematemesis [Fatal]
  - Shock [Fatal]
